FAERS Safety Report 21155558 (Version 2)
Quarter: 2022Q3

REPORT INFORMATION
  Report Type: Spontaneous
  Country: GB (occurrence: GB)
  Receive Date: 20220801
  Receipt Date: 20220804
  Transmission Date: 20221027
  Serious: Yes (Hospitalization)
  Sender: FDA-Public Use
  Company Number: GB-MYLANLABS-2022M1082422

PATIENT
  Sex: Female
  Weight: 96 kg

DRUGS (4)
  1. CLOZARIL [Suspect]
     Active Substance: CLOZAPINE
     Indication: Schizophrenia
     Dosage: 100 MILLIGRAM, AM/150 MILLIGRAM, PM
     Route: 048
     Dates: start: 20211122, end: 202207
  2. BISOPROLOL [Suspect]
     Active Substance: BISOPROLOL
     Indication: Product used for unknown indication
     Dosage: 5 MILLIGRAM, AM (MANE)
     Route: 048
     Dates: end: 202207
  3. CHOLECALCIFEROL [Suspect]
     Active Substance: CHOLECALCIFEROL
     Indication: Product used for unknown indication
     Dosage: 400 INTERNATIONAL UNIT, AM (MANE)
     Route: 048
     Dates: end: 202207
  4. SCOPOLAMINE HYDROBROMIDE [Suspect]
     Active Substance: SCOPOLAMINE HYDROBROMIDE
     Indication: Product used for unknown indication
     Dosage: 300 MICROGRAM, TID
     Route: 048
     Dates: end: 202207

REACTIONS (1)
  - Treatment noncompliance [Recovering/Resolving]
